FAERS Safety Report 5468149-2 (Version None)
Quarter: 2007Q3

REPORT INFORMATION
  Report Type: 
  Country: None (occurrence: None)
  Receive Date: 20070924
  Receipt Date: 20070911
  Transmission Date: 20080115
  Serious: Yes (Hospitalization)
  Sender: FDA-Public Use
  Company Number: CIP07001772

PATIENT
  Age: 65 Year
  Sex: Female

DRUGS (5)
  1. FURANDANTINE(NITROFURANTOIN MACROCRYSTALS) CAPSULE, 50MG [Suspect]
     Indication: URINARY TRACT INFECTION BACTERIAL
     Dosage: 100 MG THREE TIMES DAILY, ORAL
     Route: 048
     Dates: start: 20070820, end: 20070823
  2. SECTRAL [Concomitant]
  3. ALDACTAZINE (SPIRONOLACTONE, ALTIZIDE) [Concomitant]
  4. FENOFIBRATE [Concomitant]
  5. VASTAREL (TRIMETAZIDINE HYDROCHLORIDE) [Concomitant]

REACTIONS (8)
  - DIARRHOEA [None]
  - DIZZINESS [None]
  - HEADACHE [None]
  - NAUSEA [None]
  - PURPURA NON-THROMBOCYTOPENIC [None]
  - PYREXIA [None]
  - SLEEP DISORDER [None]
  - VOMITING [None]
